FAERS Safety Report 11082070 (Version 4)
Quarter: 2015Q2

REPORT INFORMATION
  Report Type: Report from Study
  Country: BR (occurrence: BR)
  Receive Date: 20150501
  Receipt Date: 20150518
  Transmission Date: 20150821
  Serious: Yes (Hospitalization, Other)
  Sender: FDA-Public Use
  Company Number: PHHY2015BR009252

PATIENT
  Age: 73 Year
  Sex: Female
  Weight: 84 kg

DRUGS (5)
  1. DIOVAN [Suspect]
     Active Substance: VALSARTAN
     Indication: HYPERTENSION
     Dosage: 80 MG, (1 TABLET IN THE MORNING AND 1 IN THE NIGHT)
     Route: 048
     Dates: start: 2009
  2. MORPHINE [Concomitant]
     Active Substance: MORPHINE
     Indication: SPINAL PAIN
     Route: 065
  3. VYTORIN [Suspect]
     Active Substance: EZETIMIBE\SIMVASTATIN
     Indication: HYPERTENSION
     Dosage: 1 DF (10+20 MG), QHS
     Route: 048
     Dates: start: 201009
  4. METFORMIN [Suspect]
     Active Substance: METFORMIN HYDROCHLORIDE
     Indication: PRODUCT USED FOR UNKNOWN INDICATION
     Dosage: 500 MG, UNK
     Route: 065
  5. BESILATO DE ANLODIPINO [Suspect]
     Active Substance: AMLODIPINE BESYLATE
     Indication: HYPERTENSION
     Dosage: 2.5 MG, QD
     Route: 048
     Dates: start: 201009

REACTIONS (12)
  - Blood pressure abnormal [Recovering/Resolving]
  - Loss of consciousness [Unknown]
  - Back pain [Not Recovered/Not Resolved]
  - Spinal disorder [Unknown]
  - Headache [Unknown]
  - Glaucoma [Recovering/Resolving]
  - Aversion [Unknown]
  - Sleep disorder [Not Recovered/Not Resolved]
  - Tinnitus [Unknown]
  - Pain [Unknown]
  - Product use issue [Unknown]
  - Epistaxis [Recovering/Resolving]

NARRATIVE: CASE EVENT DATE: 2010
